FAERS Safety Report 16131088 (Version 1)
Quarter: 2019Q1

REPORT INFORMATION
  Report Type: Spontaneous
  Country: US (occurrence: US)
  Receive Date: 20190328
  Receipt Date: 20190328
  Transmission Date: 20190418
  Serious: Yes (Other)
  Sender: FDA-Public Use
  Company Number: US-ASTRAZENECA-2019SE44348

PATIENT
  Age: 24938 Day
  Sex: Male
  Weight: 81.7 kg

DRUGS (23)
  1. CARDURA [Concomitant]
     Active Substance: DOXAZOSIN MESYLATE
  2. IPRATROPIUM BROMIDE. [Concomitant]
     Active Substance: IPRATROPIUM BROMIDE
  3. ACETAMINOPHEN. [Concomitant]
     Active Substance: ACETAMINOPHEN
  4. KOMBIGLYZE XR [Suspect]
     Active Substance: METFORMIN HYDROCHLORIDE\SAXAGLIPTIN HYDROCHLORIDE
     Indication: DIABETES MELLITUS
     Dosage: 2.5-1000 MG
     Route: 048
     Dates: start: 2014, end: 2016
  5. TYLENOL [Concomitant]
     Active Substance: ACETAMINOPHEN
  6. LEVALBUTEROL. [Concomitant]
     Active Substance: LEVALBUTEROL
  7. ALBUTEROL. [Concomitant]
     Active Substance: ALBUTEROL
  8. DOXYCYCLINE. [Concomitant]
     Active Substance: DOXYCYCLINE
  9. METHYLPREDNISOLONE. [Concomitant]
     Active Substance: METHYLPREDNISOLONE
  10. PROVENTIL [Concomitant]
     Active Substance: ALBUTEROL
  11. KEFLEX [Concomitant]
     Active Substance: CEPHALEXIN
  12. NITROGLYCERIN. [Concomitant]
     Active Substance: NITROGLYCERIN
  13. ASPIRIN. [Concomitant]
     Active Substance: ASPIRIN
  14. LOSARTAN. [Concomitant]
     Active Substance: LOSARTAN
  15. CARVEDILOL. [Concomitant]
     Active Substance: CARVEDILOL
  16. ZOFRAN [Concomitant]
     Active Substance: ONDANSETRON HYDROCHLORIDE
  17. LISINOPRIL. [Concomitant]
     Active Substance: LISINOPRIL
  18. LIPITOR [Concomitant]
     Active Substance: ATORVASTATIN CALCIUM
  19. KOMBIGLYZE XR [Suspect]
     Active Substance: METFORMIN HYDROCHLORIDE\SAXAGLIPTIN HYDROCHLORIDE
     Indication: DIABETES MELLITUS
     Dosage: 2.5-1000 MG ONCE DAILY
     Route: 048
     Dates: start: 20141022, end: 20151110
  20. PRAVASTATIN. [Concomitant]
     Active Substance: PRAVASTATIN
  21. BENZONATATE. [Concomitant]
     Active Substance: BENZONATATE
  22. SODIUM CHLORIDE. [Concomitant]
     Active Substance: SODIUM CHLORIDE
  23. ATORVASTATIN [Concomitant]
     Active Substance: ATORVASTATIN

REACTIONS (1)
  - Cardiac failure congestive [Unknown]

NARRATIVE: CASE EVENT DATE: 20151107
